FAERS Safety Report 6226002-0 (Version None)
Quarter: 2009Q2

REPORT INFORMATION
  Report Type: 
  Country: None (occurrence: None)
  Receive Date: 20090612
  Receipt Date: 20090602
  Transmission Date: 20091009
  Serious: Yes (Hospitalization, Other)
  Sender: FDA-Public Use
  Company Number: DE-PFIZER INC-2009223252

PATIENT
  Age: 17 Year

DRUGS (5)
  1. SERTRALINE HCL [Suspect]
     Dosage: 200 MG (1 X 64 TABLETS)
     Route: 048
  2. DOXEPIN [Suspect]
     Dosage: 300MG (100MG X 30 TABLETS)
     Route: 048
  3. KYTTA-SEDATIVUM [Suspect]
     Route: 048
  4. MEDIKINET [Suspect]
     Dosage: 18 ANZ (1X18 TABLETS)
     Route: 048
  5. RITALIN [Suspect]
     Dosage: 0-12 TABLETS (1 X 64 TABLETS)
     Route: 048

REACTIONS (5)
  - ANTICHOLINERGIC SYNDROME [None]
  - DRUG ABUSE [None]
  - OVERDOSE [None]
  - SUICIDE ATTEMPT [None]
  - TACHYCARDIA [None]
